FAERS Safety Report 17581767 (Version 3)
Quarter: 2020Q2

REPORT INFORMATION
  Report Type: Report from Study
  Country: None (occurrence: ES)
  Receive Date: 20200325
  Receipt Date: 20200515
  Transmission Date: 20200713
  Serious: Yes (Other)
  Sender: FDA-Public Use
  Company Number: ES-ABBVIE-20K-144-3335315-00

PATIENT
  Age: 59 Year
  Sex: Female
  Weight: 54 kg

DRUGS (1)
  1. DUODOPA [Suspect]
     Active Substance: CARBIDOPA\LEVODOPA
     Indication: PARKINSON^S DISEASE
     Route: 050
     Dates: start: 20190124

REACTIONS (2)
  - Femur fracture [Recovered/Resolved]
  - Fall [Recovering/Resolving]

NARRATIVE: CASE EVENT DATE: 20200316
